FAERS Safety Report 11907130 (Version 1)
Quarter: 2016Q1

REPORT INFORMATION
  Report Type: Spontaneous
  Country: US (occurrence: US)
  Receive Date: 20160111
  Receipt Date: 20160111
  Transmission Date: 20160526
  Serious: Yes (Other)
  Sender: FDA-Public Use
  Company Number: US-JNJFOC-20160105167

PATIENT
  Sex: Female
  Weight: 64.41 kg

DRUGS (2)
  1. TOPAMAX [Suspect]
     Active Substance: TOPIRAMATE
     Indication: PRODUCT USED FOR UNKNOWN INDICATION
     Route: 048
     Dates: start: 1999
  2. TOPAMAX [Suspect]
     Active Substance: TOPIRAMATE
     Indication: PRODUCT USED FOR UNKNOWN INDICATION
     Route: 048
     Dates: end: 1999

REACTIONS (13)
  - Thyroid disorder [Unknown]
  - Gastric disorder [Unknown]
  - Malaise [Recovered/Resolved]
  - Surgery [Recovered/Resolved]
  - Intervertebral disc degeneration [Unknown]
  - Oesophageal disorder [Unknown]
  - Breast cyst [Recovered/Resolved]
  - Blood cholesterol increased [Unknown]
  - Skin disorder [Recovered/Resolved]
  - Skin mass [Recovered/Resolved]
  - Nodule [Recovered/Resolved]
  - Cyst [Recovered/Resolved]
  - Acne cystic [Recovered/Resolved]

NARRATIVE: CASE EVENT DATE: 1999
